FAERS Safety Report 9825803 (Version 3)
Quarter: 2014Q1

REPORT INFORMATION
  Report Type: Report from Study
  Country: US (occurrence: US)
  Receive Date: 20140117
  Receipt Date: 20140204
  Transmission Date: 20141002
  Serious: Yes (Hospitalization)
  Sender: FDA-Public Use
  Company Number: US-SA-2013SA111942

PATIENT
  Sex: Male
  Weight: 83 kg

DRUGS (21)
  1. AFLIBERCEPT [Suspect]
     Indication: RECTAL CANCER
     Route: 042
     Dates: start: 20130708, end: 20130708
  2. AFLIBERCEPT [Suspect]
     Indication: RECTAL CANCER
     Route: 042
     Dates: start: 20130729, end: 20130729
  3. AFLIBERCEPT [Suspect]
     Indication: RECTAL CANCER
     Route: 042
     Dates: start: 20131231, end: 20131231
  4. ELOXATIN [Suspect]
     Indication: RECTAL CANCER
  5. ELOXATIN [Suspect]
     Indication: RECTAL CANCER
     Route: 042
     Dates: start: 20131202, end: 20131202
  6. ELOXATIN [Suspect]
     Indication: RECTAL CANCER
     Route: 042
     Dates: start: 20131231, end: 20131231
  7. 5-FU [Suspect]
     Indication: RECTAL CANCER
     Route: 042
     Dates: start: 20130819, end: 20130819
  8. 5-FU [Suspect]
     Indication: RECTAL CANCER
     Dosage: 5 FU IVP DOSE 555 MG, AND 5 FU CI 3330 MG IV
     Route: 042
     Dates: start: 20131202, end: 20131202
  9. 5-FU [Suspect]
     Indication: RECTAL CANCER
     Route: 042
     Dates: start: 20131231, end: 20131231
  10. 5-FU [Suspect]
     Indication: RECTAL CANCER
     Dosage: 2410 MG
     Route: 042
     Dates: start: 20130708, end: 20130708
  11. LEUCOVORIN [Suspect]
     Indication: RECTAL CANCER
     Route: 042
     Dates: start: 20131231, end: 20131231
  12. LEUCOVORIN [Suspect]
     Indication: RECTAL CANCER
     Route: 042
     Dates: start: 20131202, end: 20131202
  13. GLIPIZIDE [Concomitant]
     Indication: TYPE 2 DIABETES MELLITUS
     Route: 048
     Dates: start: 20030101
  14. LIPITOR [Concomitant]
     Indication: HYPERLIPIDAEMIA
     Route: 048
     Dates: start: 20100101
  15. SERETIDE [Concomitant]
     Indication: CHRONIC OBSTRUCTIVE PULMONARY DISEASE
     Route: 048
     Dates: start: 20050101
  16. METFORMIN [Concomitant]
     Indication: TYPE 2 DIABETES MELLITUS
     Route: 048
     Dates: start: 20030101
  17. HYDROCHLOROTHIAZIDE [Concomitant]
     Indication: HYPERTENSION
     Route: 048
     Dates: start: 20030101
  18. ALBUTEROL [Concomitant]
     Indication: CHRONIC OBSTRUCTIVE PULMONARY DISEASE
     Dates: start: 20050101
  19. TARKA [Concomitant]
     Indication: HYPERTENSION
     Route: 048
     Dates: start: 20030101
  20. PRO-AIR [Concomitant]
     Indication: CHRONIC OBSTRUCTIVE PULMONARY DISEASE
     Dosage: 1-2 PUFF
     Dates: start: 20050101
  21. PRILOSEC [Concomitant]
     Indication: DYSPEPSIA
     Route: 048
     Dates: start: 20110101

REACTIONS (4)
  - Eastern Cooperative Oncology Group performance status worsened [Not Recovered/Not Resolved]
  - Sepsis [Recovered/Resolved]
  - Small intestinal obstruction [Recovered/Resolved]
  - Deep vein thrombosis [Recovered/Resolved]
